FAERS Safety Report 8610996-X (Version None)
Quarter: 2012Q3

REPORT INFORMATION
  Report Type: 
  Country: None (occurrence: None)
  Receive Date: 20120822
  Receipt Date: 20120814
  Transmission Date: 20120928
  Serious: Yes (Hospitalization)
  Sender: FDA-Public Use
  Company Number: US-JNJFOC-20111100235

PATIENT
  Sex: Female
  Weight: 50.4 kg

DRUGS (5)
  1. ANTIBIOTICS [Concomitant]
     Indication: INFLAMMATORY BOWEL DISEASE
  2. INFLIXIMAB, RECOMBINANT [Suspect]
     Indication: INFLAMMATORY BOWEL DISEASE
     Route: 042
     Dates: start: 20100830
  3. PREDNISONE TAB [Concomitant]
  4. LEVAQUIN [Concomitant]
  5. ZANTAC [Concomitant]

REACTIONS (1)
  - POSTOPERATIVE ILEUS [None]
